FAERS Safety Report 8437647-1 (Version None)
Quarter: 2012Q2

REPORT INFORMATION
  Report Type: 
  Country: None (occurrence: None)
  Receive Date: 20120323
  Receipt Date: 20110825
  Transmission Date: 20120825
  Serious: Yes (Other)
  Sender: FDA-Public Use
  Company Number: 163-21880-11062489

PATIENT
  Age: 78 Year
  Sex: Male
  Weight: 89.4 kg

DRUGS (3)
  1. REVLIMID [Suspect]
  2. REVLIMID [Suspect]
     Indication: MULTIPLE MYELOMA
     Dosage: 15 MG, DAYS 1-14, PO
     Route: 048
     Dates: start: 20101129
  3. THALOMID [Suspect]
     Indication: MULTIPLE MYELOMA
     Dosage: 50 MG, QHS, PO
     Route: 048
     Dates: start: 20110302

REACTIONS (3)
  - RASH [None]
  - ERYTHEMA [None]
  - THROMBOSIS [None]
